FAERS Safety Report 18509193 (Version 1)
Quarter: 2020Q4

REPORT INFORMATION
  Report Type: Report from Study
  Country: None (occurrence: CA)
  Receive Date: 20201117
  Receipt Date: 20201117
  Transmission Date: 20210114
  Serious: Yes (Other)
  Sender: FDA-Public Use
  Company Number: CA-ABBVIE-20K-028-3650815-00

PATIENT
  Sex: Female

DRUGS (1)
  1. HUMIRA [Suspect]
     Active Substance: ADALIMUMAB
     Indication: COLITIS ULCERATIVE
     Route: 058
     Dates: start: 20170809

REACTIONS (9)
  - Fistula [Recovering/Resolving]
  - Ulcer [Not Recovered/Not Resolved]
  - Plantar fasciitis [Unknown]
  - Adnexa uteri cyst [Not Recovered/Not Resolved]
  - Anaemia [Not Recovered/Not Resolved]
  - Anorectal disorder [Not Recovered/Not Resolved]
  - Abscess [Recovering/Resolving]
  - Colectomy [Unknown]
  - Iron deficiency [Not Recovered/Not Resolved]
